FAERS Safety Report 7341075-X (Version None)
Quarter: 2011Q1

REPORT INFORMATION
  Report Type: 
  Country: None (occurrence: None)
  Receive Date: 20110309
  Receipt Date: 20110222
  Transmission Date: 20110831
  Serious: Yes (Other)
  Sender: FDA-Public Use
  Company Number: PHHY2011GB18791

PATIENT
  Sex: Female

DRUGS (1)
  1. RAMIPRIL [Suspect]

REACTIONS (1)
  - LOWER RESPIRATORY TRACT INFECTION [None]
